FAERS Safety Report 5603290-2 (Version None)
Quarter: 2008Q1

REPORT INFORMATION
  Report Type: 
  Country: None (occurrence: None)
  Receive Date: 20080123
  Receipt Date: 20080117
  Transmission Date: 20080703
  Serious: Yes (Hospitalization, Other)
  Sender: FDA-Public Use
  Company Number: 2008SP001319

PATIENT
  Age: 59 Year
  Sex: Female

DRUGS (2)
  1. INTRON A [Suspect]
     Indication: HEPATITIS C
     Dosage: IM
     Route: 030
     Dates: start: 20061101, end: 20070825
  2. REBETOL [Suspect]
     Indication: HEPATITIS C
     Dosage: PO
     Route: 048
     Dates: start: 20061101, end: 20070825

REACTIONS (9)
  - ANTIBODY TEST POSITIVE [None]
  - DIABETES MELLITUS INADEQUATE CONTROL [None]
  - DIABETIC KETOACIDOSIS [None]
  - GOITRE [None]
  - HYPERTHYROIDISM [None]
  - HYPOTHYROIDISM [None]
  - PALLANAESTHESIA [None]
  - THYROID FUNCTION TEST ABNORMAL [None]
  - TYPE 1 DIABETES MELLITUS [None]
